FAERS Safety Report 8335175-5 (Version None)
Quarter: 2012Q2

REPORT INFORMATION
  Report Type: 
  Country: None (occurrence: None)
  Receive Date: 20120503
  Receipt Date: 20120427
  Transmission Date: 20120825
  Serious: Yes (Other)
  Sender: FDA-Public Use
  Company Number: US-PFIZER INC-2012105890

PATIENT
  Sex: Female

DRUGS (1)
  1. LYRICA [Suspect]
     Dosage: 75 MG, 2X/DAY
     Route: 048

REACTIONS (4)
  - FIBROMYALGIA [None]
  - HYPOAESTHESIA [None]
  - PARAESTHESIA [None]
  - ACTIVITIES OF DAILY LIVING IMPAIRED [None]
